FAERS Safety Report 5508596-3 (Version None)
Quarter: 2007Q4

REPORT INFORMATION
  Report Type: 
  Country: None (occurrence: None)
  Receive Date: 20071107
  Receipt Date: 20071027
  Transmission Date: 20080405
  Serious: Yes (Hospitalization)
  Sender: FDA-Public Use
  Company Number: IN-NOVOPROD-269003

PATIENT
  Sex: Female
  Weight: 66 kg

DRUGS (5)
  1. NOVOLOG MIX 70/30 [Suspect]
     Indication: DIABETES MELLITUS
     Dosage: 12 U, QD
     Route: 058
     Dates: start: 20070607, end: 20070906
  2. NOVOLOG MIX 70/30 [Suspect]
     Dosage: 36 U, QD
     Dates: start: 20071003
  3. GLYCOMET                           /00082701/ [Concomitant]
     Dosage: 1 G, QD
     Route: 048
     Dates: start: 20070607
  4. RAMICHEK [Concomitant]
     Dosage: 2.5 MG, QD
     Route: 048
     Dates: start: 20070110
  5. ATORLIP [Concomitant]
     Dosage: 10 MG, UNK
     Route: 048
     Dates: start: 20070110

REACTIONS (2)
  - DIABETIC KETOACIDOSIS [None]
  - PYREXIA [None]
